FAERS Safety Report 6178164-1 (Version None)
Quarter: 2009Q2

REPORT INFORMATION
  Report Type: 
  Country: None (occurrence: None)
  Receive Date: 20090504
  Receipt Date: 20090218
  Transmission Date: 20091009
  Serious: No
  Sender: FDA-Public Use
  Company Number: US-ALEXION-A200900131

PATIENT
  Sex: Female

DRUGS (5)
  1. SOLIRIS [Suspect]
     Route: 042
  2. SOLIRIS [Suspect]
     Dosage: 900 MG, UNK
     Route: 042
     Dates: start: 20090213
  3. BENADRYL [Concomitant]
     Indication: PREMEDICATION
  4. STEROIDS [Concomitant]
     Indication: PREMEDICATION
  5. TYLENOL (CAPLET) [Concomitant]

REACTIONS (1)
  - RASH [None]
